FAERS Safety Report 24741184 (Version 2)
Quarter: 2025Q1

REPORT INFORMATION
  Report Type: Spontaneous
  Country: US (occurrence: US)
  Receive Date: 20241217
  Receipt Date: 20250310
  Transmission Date: 20250409
  Serious: No
  Sender: GILEAD
  Company Number: US-GILEAD-2024-0697227

PATIENT
  Sex: Male

DRUGS (10)
  1. EPCLUSA [Suspect]
     Active Substance: SOFOSBUVIR\VELPATASVIR
     Indication: Hepatitis C
     Dosage: 1 DOSAGE FORM, QD/ 400 MG/100 MG
     Route: 048
     Dates: start: 20241130
  2. ASPIRIN [Concomitant]
     Active Substance: ASPIRIN
  3. CABERGOLINE [Concomitant]
     Active Substance: CABERGOLINE
  4. DOXEPIN HYDROCHLORIDE [Concomitant]
     Active Substance: DOXEPIN HYDROCHLORIDE
  5. PRASTERONE [Concomitant]
     Active Substance: PRASTERONE
  6. AMBIEN [Concomitant]
     Active Substance: ZOLPIDEM TARTRATE
  7. VITAMINS [Concomitant]
     Active Substance: VITAMINS
  8. VITAMIN B3 [Concomitant]
     Active Substance: NIACIN
  9. HYDROCHLOROTHIAZIDE\LOSARTAN POTASSIUM [Concomitant]
     Active Substance: HYDROCHLOROTHIAZIDE\LOSARTAN POTASSIUM
  10. ROSUVASTATIN [Concomitant]
     Active Substance: ROSUVASTATIN

REACTIONS (3)
  - Dysphagia [Unknown]
  - Product size issue [Unknown]
  - Product dose omission issue [Unknown]
